FAERS Safety Report 16729397 (Version 1)
Quarter: 2019Q3

REPORT INFORMATION
  Report Type: Spontaneous
  Country: PL (occurrence: PL)
  Receive Date: 20190822
  Receipt Date: 20190822
  Transmission Date: 20191005
  Serious: Yes (Other)
  Sender: FDA-Public Use
  Company Number: PL-BAYER-2019-150391

PATIENT
  Age: 46 Year
  Sex: Female

DRUGS (5)
  1. ITOPRIDE [Interacting]
     Active Substance: ITOPRIDE
     Indication: GASTROOESOPHAGEAL REFLUX DISEASE
     Dosage: DAILY DOSE 90 MG
  2. ARIPIPRAZOLE. [Concomitant]
     Active Substance: ARIPIPRAZOLE
     Indication: BIPOLAR DISORDER
     Dosage: DAILY DOSE 7.5 MG
  3. PANTOPRAZOLE [Concomitant]
     Active Substance: PANTOPRAZOLE
     Indication: GASTROOESOPHAGEAL REFLUX DISEASE
     Dosage: DAILY DOSE 40 MG
  4. CIPROFLOXACIN. [Suspect]
     Active Substance: CIPROFLOXACIN
  5. OLANZAPINE. [Interacting]
     Active Substance: OLANZAPINE
     Indication: BIPOLAR DISORDER
     Dosage: DAILY DOSE 10 MG

REACTIONS (2)
  - Urine odour abnormal [None]
  - Labelled drug-drug interaction medication error [None]
